FAERS Safety Report 9414649 (Version 1)
Quarter: 2013Q3

REPORT INFORMATION
  Report Type: Spontaneous
  Country: US (occurrence: US)
  Receive Date: 20130723
  Receipt Date: 20130723
  Transmission Date: 20140515
  Serious: Yes (Other)
  Sender: FDA-Public Use
  Company Number: US-PFIZER INC-2013211572

PATIENT
  Sex: Female

DRUGS (1)
  1. TOFACITINIB CITRATE [Suspect]
     Dosage: UNK

REACTIONS (4)
  - Rheumatoid arthritis [Unknown]
  - Malaise [Unknown]
  - Arthralgia [Unknown]
  - Pain [Unknown]
